FAERS Safety Report 9469300 (Version 5)
Quarter: 2014Q2

REPORT INFORMATION
  Report Type: Report from Study
  Country: AU (occurrence: AU)
  Receive Date: 20130821
  Receipt Date: 20140425
  Transmission Date: 20141212
  Serious: Yes (Life-Threatening, Hospitalization, Other)
  Sender: FDA-Public Use
  Company Number: AU-ROCHE-1255394

PATIENT
  Age: 71 Year
  Sex: Female
  Weight: 85 kg

DRUGS (12)
  1. ACTEMRA [Suspect]
     Indication: RHEUMATOID ARTHRITIS
     Route: 042
     Dates: start: 20120119, end: 20130704
  2. FELDENE [Concomitant]
     Indication: ANTIINFLAMMATORY THERAPY
     Dosage: ONGOING. STARTED YEARS AGO.
     Route: 048
  3. BETALOC [Concomitant]
     Dosage: ONGOING.
     Route: 048
     Dates: start: 2008
  4. PREDNISOLONE [Concomitant]
     Indication: RHEUMATOID ARTHRITIS
     Dosage: ONGOING. STARTED YEARS AGO.
     Route: 048
  5. VESICARE [Concomitant]
     Indication: MICTURITION URGENCY
     Dosage: ON 3 DAYS A WEEK. ONGOING. STARTED EARLY 2012.
     Route: 048
     Dates: start: 2012
  6. VESICARE [Concomitant]
     Dosage: ON 4 DAYS A WEEK. ONGOING. STARTED EARLY 2012.
     Route: 048
     Dates: start: 2012
  7. OMEPRAZOL [Concomitant]
     Indication: GASTROOESOPHAGEAL REFLUX DISEASE
     Dosage: ONGOING. STARTED 10 YEARS AGO.
     Route: 048
  8. CRESTOR [Concomitant]
     Indication: BLOOD CHOLESTEROL INCREASED
     Dosage: ONGOING. STARTED EARLY 2012.
     Route: 048
     Dates: start: 2012
  9. ENDEP [Concomitant]
     Dosage: ONGOING. STARTED 4 YRS AGO.
     Route: 048
  10. ASPIRIN [Concomitant]
     Dosage: ONGOING. STARTED YEARS AGO.
     Route: 048
  11. ORUDIS SR [Concomitant]
     Route: 048
  12. METHOTREXATE [Concomitant]
     Indication: RHEUMATOID ARTHRITIS
     Dosage: ON SUNDAY NIGHT.
     Route: 048
     Dates: start: 20060709, end: 20130709

REACTIONS (5)
  - Cholecystitis [Recovered/Resolved]
  - Sepsis [Recovered/Resolved]
  - Cholangitis infective [Not Recovered/Not Resolved]
  - Kidney infection [Not Recovered/Not Resolved]
  - Pancreatic cyst [Unknown]
